FAERS Safety Report 6078613-3 (Version None)
Quarter: 2009Q1

REPORT INFORMATION
  Report Type: 
  Country: None (occurrence: None)
  Receive Date: 20090215
  Receipt Date: 20090203
  Transmission Date: 20090719
  Serious: Yes (Other)
  Sender: FDA-Public Use
  Company Number: DE-ALLERGAN-0901525US

PATIENT
  Sex: Female

DRUGS (3)
  1. BOTOX [Suspect]
     Indication: DRUG USE FOR UNKNOWN INDICATION
     Dosage: UNK, UNKNOWN
     Route: 065
  2. LIORESAL [Concomitant]
  3. MYDOCALM [Concomitant]

REACTIONS (3)
  - ATAXIA [None]
  - DYSPHAGIA [None]
  - MUSCULAR WEAKNESS [None]
